FAERS Safety Report 19578186 (Version 2)
Quarter: 2021Q3

REPORT INFORMATION
  Report Type: Report from Study
  Country: FR (occurrence: FR)
  Receive Date: 20210719
  Receipt Date: 20210823
  Transmission Date: 20211014
  Serious: Yes (Death, Hospitalization, Other)
  Sender: FDA-Public Use
  Company Number: FR-TAKEDA-FR201920173

PATIENT
  Age: 56 Year
  Sex: Female
  Weight: 47 kg

DRUGS (16)
  1. TEDUGLUTIDE [Suspect]
     Active Substance: TEDUGLUTIDE
     Indication: SHORT-BOWEL SYNDROME
     Dosage: 2.4 MILLIGRAM, 1X/DAY:QD, TED DAILY DOSE MG/KG WAS 0.05 (DOSES PER WEEK 7)
     Route: 065
     Dates: start: 20170529, end: 20180524
  2. TEDUGLUTIDE [Suspect]
     Active Substance: TEDUGLUTIDE
     Dosage: 2.4 MILLIGRAM, 1X/DAY:QD, TED DAILY DOSE MG/KG WAS 0.05 (DOSES PER WEEK 7)
     Route: 065
     Dates: start: 20180607, end: 20190425
  3. DORZOLAMIDE [Concomitant]
     Active Substance: DORZOLAMIDE
     Indication: CATARACT
     Dosage: UNK
     Route: 065
  4. EFFEXOR [Concomitant]
     Active Substance: VENLAFAXINE HYDROCHLORIDE
     Indication: ANXIETY
     Dosage: UNK
     Route: 065
  5. ACLASTA [Concomitant]
     Active Substance: ZOLEDRONIC ACID
     Indication: OSTEOPOROSIS
     Dosage: 5 MILLIGRAM, ONE DOSE
     Route: 042
     Dates: start: 20180528, end: 20180528
  6. TEDUGLUTIDE [Suspect]
     Active Substance: TEDUGLUTIDE
     Indication: SHORT-BOWEL SYNDROME
     Dosage: 2.4 MILLIGRAM, 1X/DAY:QD, TED DAILY DOSE MG/KG WAS 0.05 (DOSES PER WEEK 7)
     Route: 065
     Dates: start: 20170529, end: 20180524
  7. TIMOLOL. [Concomitant]
     Active Substance: TIMOLOL
     Indication: CATARACT
     Dosage: UNK
     Route: 065
  8. TEDUGLUTIDE [Suspect]
     Active Substance: TEDUGLUTIDE
     Indication: SHORT-BOWEL SYNDROME
     Dosage: 2.4 MILLIGRAM, 1X/DAY:QD, TED DAILY DOSE MG/KG WAS 0.05 (DOSES PER WEEK 7)
     Route: 065
     Dates: start: 20170529, end: 20180524
  9. TEDUGLUTIDE [Suspect]
     Active Substance: TEDUGLUTIDE
     Indication: SHORT-BOWEL SYNDROME
     Dosage: 2.4 MILLIGRAM, 1X/DAY:QD, TED DAILY DOSE MG/KG WAS 0.05 (DOSES PER WEEK 7)
     Route: 065
     Dates: start: 20170529, end: 20180524
  10. VITAMIN B12 [Concomitant]
     Active Substance: CYANOCOBALAMIN
     Indication: SUPPLEMENTATION THERAPY
     Dosage: 1 MILLIGRAM, ONE DOSE
     Route: 058
     Dates: start: 201806, end: 201806
  11. SIMBRINZA [Concomitant]
     Active Substance: BRIMONIDINE TARTRATE\BRINZOLAMIDE
     Indication: CATARACT
     Dosage: UNK
     Route: 065
  12. TEDUGLUTIDE [Suspect]
     Active Substance: TEDUGLUTIDE
     Dosage: 2.4 MILLIGRAM, 1X/DAY:QD, TED DAILY DOSE MG/KG WAS 0.05 (DOSES PER WEEK 7)
     Route: 065
     Dates: start: 20180607, end: 20190425
  13. TEDUGLUTIDE [Suspect]
     Active Substance: TEDUGLUTIDE
     Dosage: 2.4 MILLIGRAM, 1X/DAY:QD, TED DAILY DOSE MG/KG WAS 0.05 (DOSES PER WEEK 7)
     Route: 065
     Dates: start: 20180607, end: 20190425
  14. VERSATIS [Concomitant]
     Active Substance: LIDOCAINE
     Indication: CARPAL TUNNEL SYNDROME
     Dosage: 999 UNK
     Route: 061
     Dates: start: 201804
  15. TEDUGLUTIDE [Suspect]
     Active Substance: TEDUGLUTIDE
     Dosage: 2.4 MILLIGRAM, 1X/DAY:QD, TED DAILY DOSE MG/KG WAS 0.05 (DOSES PER WEEK 7)
     Route: 065
     Dates: start: 20180607, end: 20190425
  16. VITAMIN D3 [Concomitant]
     Active Substance: CHOLECALCIFEROL
     Indication: SUPPLEMENTATION THERAPY
     Dosage: 200000 UNITS, ONE DOSE
     Route: 058
     Dates: start: 201806, end: 201806

REACTIONS (1)
  - Septic shock [Fatal]

NARRATIVE: CASE EVENT DATE: 20190614
